FAERS Safety Report 8634021 (Version 3)
Quarter: 2013Q4

REPORT INFORMATION
  Report Type: Spontaneous
  Country: US (occurrence: US)
  Receive Date: 20120626
  Receipt Date: 20131129
  Transmission Date: 20140711
  Serious: Yes (Other)
  Sender: FDA-Public Use
  Company Number: US-ASTRAZENECA-2012SE35883

PATIENT
  Age: 59 Year
  Sex: Female
  Weight: 117.9 kg

DRUGS (17)
  1. NEXIUM [Suspect]
     Indication: DYSPEPSIA
     Route: 048
     Dates: start: 2001
  2. NEXIUM [Suspect]
     Indication: DYSPEPSIA
     Route: 048
     Dates: start: 20090409
  3. TUMS [Concomitant]
     Dosage: AS NEEDED
  4. ADVIL [Concomitant]
  5. ALEVE [Concomitant]
  6. HYDROCHLOROTHIAZIDE/ HCTZ [Concomitant]
     Route: 048
  7. SIMVASTATIN [Concomitant]
     Route: 048
     Dates: start: 20110303
  8. SKELAXIN [Concomitant]
     Indication: MUSCLE SPASMS
     Route: 048
  9. ULTRAM [Concomitant]
     Indication: PAIN
     Dosage: 1-2 ORALLY EVERY 12 HOURS AS NEEDED
     Route: 048
  10. CELEBREX [Concomitant]
  11. BENAZEPRIL [Concomitant]
     Dates: start: 20110303
  12. HCTZ [Concomitant]
  13. METOPROLOL SUCCINATE [Concomitant]
     Dates: start: 20110809
  14. METFORMIN [Concomitant]
     Dates: start: 20120319
  15. FUROSEMIDE [Concomitant]
     Dates: start: 20120326
  16. LISINOPRIL [Concomitant]
     Dates: start: 20130225
  17. AMLODIPINE BESYLATE [Concomitant]

REACTIONS (6)
  - Hip fracture [Unknown]
  - Osteoporosis [Unknown]
  - Multiple fractures [Unknown]
  - Arthritis [Unknown]
  - Vitamin D deficiency [Unknown]
  - Diabetes mellitus [Unknown]
